FAERS Safety Report 11309263 (Version 2)
Quarter: 2015Q3

REPORT INFORMATION
  Report Type: Spontaneous
  Country: FR (occurrence: FR)
  Receive Date: 20150724
  Receipt Date: 20150727
  Transmission Date: 20151125
  Serious: Yes (Life-Threatening, Hospitalization, Other)
  Sender: FDA-Public Use
  Company Number: FR-BAYER-2015-153289

PATIENT
  Age: 30 Year
  Sex: Female
  Weight: 65 kg

DRUGS (1)
  1. MIRENA [Suspect]
     Active Substance: LEVONORGESTREL
     Indication: CONTRACEPTION
     Dosage: 20 MCG/24HR, CONT
     Route: 015
     Dates: start: 20121011

REACTIONS (8)
  - Abdominal pain [Recovered/Resolved]
  - Amenorrhoea [None]
  - Menstruation irregular [None]
  - Ectopic pregnancy with contraceptive device [None]
  - Drug ineffective [None]
  - Ruptured ectopic pregnancy [Recovered/Resolved]
  - Peritoneal haemorrhage [Recovered/Resolved]
  - Metrorrhagia [Recovered/Resolved]

NARRATIVE: CASE EVENT DATE: 201307
